FAERS Safety Report 9101461 (Version 1)
Quarter: 2013Q1

REPORT INFORMATION
  Report Type: Spontaneous
  Country: US (occurrence: US)
  Receive Date: 20130215
  Receipt Date: 20130215
  Transmission Date: 20140127
  Serious: No
  Sender: FDA-Public Use
  Company Number: US-BAYER-2013-019684

PATIENT
  Age: 50 Year
  Sex: Male
  Weight: 112 kg

DRUGS (5)
  1. ALEVE CAPLET/TABLET,MIDOL EXTENDED RELIEF CAPLET [Suspect]
     Dosage: 3 DF, QD
     Route: 048
     Dates: start: 20130205, end: 20130206
  2. ALEVE CAPLET/TABLET,MIDOL EXTENDED RELIEF CAPLET [Suspect]
     Dosage: UNK UNK, QD
  3. IBUPROFEN [Concomitant]
  4. BLOOD PRESSURE MEDICATION (NOS) [Concomitant]
  5. ONE-A-DAY MEN^S 50 + ADVANTAGE [Concomitant]

REACTIONS (2)
  - Drug ineffective [None]
  - Incorrect dose administered [None]
